FAERS Safety Report 16457874 (Version 3)
Quarter: 2019Q3

REPORT INFORMATION
  Report Type: Spontaneous
  Country: FI (occurrence: FI)
  Receive Date: 20190620
  Receipt Date: 20190702
  Transmission Date: 20191004
  Serious: Yes (Hospitalization, Other)
  Sender: FDA-Public Use
  Company Number: FI-PFIZER INC-2019259226

PATIENT
  Age: 75 Year
  Sex: Female

DRUGS (23)
  1. CARDACE [RAMIPRIL] [Concomitant]
     Dosage: 10 MG, 1X1
  2. VI-SIBLIN [PLANTAGO AFRA SEED;SODIUM CHLORIDE;THIAMINE HYDROCHLORIDE] [Concomitant]
     Dosage: 610 MG/G, 3X1
  3. CALCICHEW D3 FORTE SITRUUNA [Concomitant]
     Dosage: 500 MG/10 MICROGRAMS 1X1
  4. ORLOC [Concomitant]
     Active Substance: BISOPROLOL FUMARATE
     Dosage: 5 MG, 0.5
  5. IBRANCE [Suspect]
     Active Substance: PALBOCICLIB
     Indication: BREAST CANCER METASTATIC
     Dosage: 125 MG, UNK
     Dates: start: 20190611, end: 20190613
  6. PARIET [Concomitant]
     Active Substance: RABEPRAZOLE SODIUM
     Dosage: 20 MG, 1X/DAY
  7. HYDREX SEMI [Concomitant]
     Dosage: 25 MG, 1 X 1
  8. PREDNISOLON [PREDNISOLONE] [Concomitant]
     Active Substance: PREDNISOLONE
     Dosage: 20 MG, 1 IN THE MORNING
  9. LANTUS [Concomitant]
     Active Substance: INSULIN GLARGINE
     Dosage: 100 U/ML 60I
  10. DIGOXIN. [Concomitant]
     Active Substance: DIGOXIN
     Dosage: UNK
  11. XGEVA [Concomitant]
     Active Substance: DENOSUMAB
     Dosage: 120 MG, UNK
  12. LETROZOL STADA [Concomitant]
     Indication: BREAST CANCER METASTATIC
     Dosage: 2.5 MG, 1 IN THE MORNING
     Dates: start: 20190612
  13. APURIN SANDOZ [Concomitant]
     Active Substance: ALLOPURINOL
     Dosage: 300 MG, 1X1
  14. FLIXOTIDE EVOHALER [Concomitant]
     Active Substance: FLUTICASONE PROPIONATE
     Dosage: 250 UG, 1 IN THE MORNING + 1 IN THE EVENING
  15. DOXIMED [DOXYCYCLINE MONOHYDRATE] [Concomitant]
     Dosage: 150 MG, 1X1
  16. AMLORATIO [Concomitant]
     Active Substance: AMLODIPINE BESYLATE
     Dosage: 5 MG, 1 X 1
  17. DIFORMIN RETARD [Concomitant]
     Active Substance: METFORMIN HYDROCHLORIDE
     Dosage: 500 MG, 2+2
  18. VICTOZA [Concomitant]
     Active Substance: LIRAGLUTIDE
     Dosage: 6 MG/ML, 1.2 MG X 1
  19. MAREVAN FORTE [Concomitant]
     Active Substance: WARFARIN SODIUM
     Dosage: 5 MG, UNK
  20. PANADOL FORTE [PARACETAMOL] [Concomitant]
     Dosage: 1 G, 1X1-3
  21. NOVORAPID [Concomitant]
     Active Substance: INSULIN ASPART
     Dosage: 100 U/ML EO
  22. DINIT [ISOSORBIDE DINITRATE] [Concomitant]
     Dosage: 1.25 MG/DOSE 1X1
  23. VENTOLINE DISCUS [Concomitant]
     Dosage: 200 UG/DOSE, 1-2X1-4

REACTIONS (7)
  - Dyspnoea [Unknown]
  - Bradycardia [Recovered/Resolved]
  - Asthma [Unknown]
  - Cough [Unknown]
  - Nasopharyngitis [Unknown]
  - Asthenia [Unknown]
  - Rhinitis [Unknown]

NARRATIVE: CASE EVENT DATE: 20190613
